FAERS Safety Report 5394446-5 (Version None)
Quarter: 2007Q3

REPORT INFORMATION
  Report Type: 
  Country: None (occurrence: None)
  Receive Date: 20070723
  Receipt Date: 20070531
  Transmission Date: 20080115
  Serious: No
  Sender: FDA-Public Use
  Company Number: US-AMGEN-US227142

PATIENT
  Sex: Male

DRUGS (3)
  1. VECTIBIX [Suspect]
     Indication: COLORECTAL CANCER
     Dates: start: 20070201, end: 20070601
  2. XELODA [Concomitant]
  3. OXALIPLATIN [Concomitant]

REACTIONS (1)
  - NAIL INFECTION [None]
